FAERS Safety Report 7427103-1 (Version None)
Quarter: 2011Q2

REPORT INFORMATION
  Report Type: 
  Country: None (occurrence: None)
  Receive Date: 20110420
  Receipt Date: 20110323
  Transmission Date: 20111010
  Serious: Yes (Other)
  Sender: FDA-Public Use
  Company Number: US-BAYER-200936592NA

PATIENT
  Age: 29 Year
  Sex: Female
  Weight: 53.636 kg

DRUGS (2)
  1. YASMIN [Suspect]
     Route: 048
     Dates: start: 20010701, end: 20071103
  2. YASMIN [Suspect]
     Route: 048
     Dates: start: 20010701, end: 20071103

REACTIONS (3)
  - MYOCARDIAL INFARCTION [None]
  - CHEST PAIN [None]
  - NAUSEA [None]
